FAERS Safety Report 21816162 (Version 1)
Quarter: 2023Q1

REPORT INFORMATION
  Report Type: Spontaneous
  Country: US (occurrence: None)
  Receive Date: 20230103
  Receipt Date: 20230103
  Transmission Date: 20230418
  Serious: No
  Sender: FDA-Public Use
  Company Number: None

PATIENT
  Age: 82 Year
  Sex: Female
  Weight: 70.62 kg

DRUGS (17)
  1. CAPECITABINE [Suspect]
     Active Substance: CAPECITABINE
     Indication: Breast cancer female
     Dosage: 1500MG TWICE DAILY ORAL?
     Route: 048
     Dates: start: 20221118
  2. ADVIL [Concomitant]
  3. CENTRUM SILVER [Concomitant]
  4. COLACE [Concomitant]
  5. COENZYME Q10 [Concomitant]
     Active Substance: DIETARY SUPPLEMENT\UBIDECARENONE
  6. ELIQUIS [Concomitant]
  7. ISOSORBIDE [Concomitant]
  8. LIDOCAINE [Concomitant]
  9. LINZESS [Concomitant]
  10. LIPITOR [Concomitant]
  11. MAGOX [Concomitant]
  12. OMEPRAZOLE [Concomitant]
  13. MICARDIS [Concomitant]
  14. PACERONE [Concomitant]
  15. SYNTHROID [Concomitant]
  16. TORSEMIDE [Concomitant]
  17. TYLENOL [Concomitant]

REACTIONS (1)
  - Drug intolerance [None]
